FAERS Safety Report 5191942-0 (Version None)
Quarter: 2006Q4

REPORT INFORMATION
  Report Type: 
  Country: None (occurrence: None)
  Receive Date: 20061227
  Receipt Date: 20060822
  Transmission Date: 20070319
  Serious: Yes (Hospitalization, Other)
  Sender: FDA-Public Use
  Company Number: US-AVENTIS-200617764US

PATIENT
  Sex: Female
  Weight: 102.3 kg

DRUGS (12)
  1. LANTUS [Suspect]
     Indication: DIABETES MELLITUS NON-INSULIN-DEPENDENT
     Route: 058
     Dates: start: 19990101, end: 20060627
  2. LANTUS [Suspect]
     Route: 058
     Dates: start: 20060702
  3. BYETTA [Suspect]
     Indication: DIABETES MELLITUS NON-INSULIN-DEPENDENT
     Dosage: DOSE: UNKNOWN
     Dates: start: 20060628, end: 20060702
  4. AVANDAMET [Suspect]
     Indication: DIABETES MELLITUS NON-INSULIN-DEPENDENT
     Dates: start: 20060620
  5. AVANDAMET [Suspect]
     Dosage: DOSE: 4/100
     Dates: start: 20060720, end: 20060721
  6. QUINAPRIL [Concomitant]
     Dosage: DOSE: UNKNOWN
  7. CRESTOR [Concomitant]
     Dosage: DOSE: UNKNOWN
  8. PAXIL [Concomitant]
     Dosage: DOSE: UNKNOWN
  9. ZYRTEC [Concomitant]
     Dosage: DOSE: UNKNOWN
  10. PRILOSEC                           /00661201/ [Concomitant]
     Dosage: DOSE: UNKNOWN
  11. PROTONIX [Concomitant]
     Dosage: DOSE: UNKNOWN
  12. FLUTICASONE PROPIONATE [Concomitant]
     Dosage: DOSE: UNKNOWN

REACTIONS (7)
  - DIABETIC KETOACIDOSIS [None]
  - ERYTHEMA [None]
  - HYPERSENSITIVITY [None]
  - MALAISE [None]
  - PRURITUS [None]
  - SWELLING [None]
  - URTICARIA [None]
